FAERS Safety Report 13915238 (Version 1)
Quarter: 2017Q3

REPORT INFORMATION
  Report Type: Spontaneous
  Country: US (occurrence: US)
  Receive Date: 20170828
  Receipt Date: 20170828
  Transmission Date: 20171127
  Serious: Yes (Other)
  Sender: FDA-Public Use
  Company Number: None

PATIENT
  Age: 52 Year
  Sex: Female
  Weight: 42.6 kg

DRUGS (1)
  1. INVOKAMET [Suspect]
     Active Substance: CANAGLIFLOZIN\METFORMIN HYDROCHLORIDE
     Indication: TYPE 2 DIABETES MELLITUS
     Route: 048
     Dates: start: 20170122, end: 20170821

REACTIONS (5)
  - Carbon dioxide decreased [None]
  - Subarachnoid haemorrhage [None]
  - Diabetic ketoacidosis [None]
  - Anion gap increased [None]
  - Urine ketone body present [None]

NARRATIVE: CASE EVENT DATE: 20170821
